FAERS Safety Report 19792645 (Version 2)
Quarter: 2021Q4

REPORT INFORMATION
  Report Type: Spontaneous
  Country: DE (occurrence: DE)
  Receive Date: 20210906
  Receipt Date: 20211108
  Transmission Date: 20220303
  Serious: Yes (Hospitalization)
  Sender: FDA-Public Use
  Company Number: DE-ADRED-06250-01

PATIENT
  Age: 74 Year
  Sex: Male
  Weight: 75 kg

DRUGS (6)
  1. OXALIPLATIN [Suspect]
     Active Substance: OXALIPLATIN
     Indication: Product used for unknown indication
     Dosage: ZULETZT AM 25112020
  2. IRINOTECAN [Suspect]
     Active Substance: IRINOTECAN
     Indication: Product used for unknown indication
     Dosage: ZULETZT AM 25112020
  3. FLUOROURACIL [Suspect]
     Active Substance: FLUOROURACIL
     Indication: Product used for unknown indication
     Dosage: ZULETZT AM 25112020
  4. LEUCOVORIN [Suspect]
     Active Substance: LEUCOVORIN
     Indication: Product used for unknown indication
     Dosage: LAST ON 25-NOV-2020
  5. TROSPIUM CHLORIDE [Concomitant]
     Active Substance: TROSPIUM CHLORIDE
     Indication: Product used for unknown indication
     Dosage: UNK
  6. PANCREATIN [Concomitant]
     Active Substance: PANCRELIPASE
     Dosage: UNK

REACTIONS (7)
  - Diarrhoea [Recovering/Resolving]
  - Chills [Recovering/Resolving]
  - Nausea [Recovering/Resolving]
  - Vomiting [Recovering/Resolving]
  - Asthenia [Recovering/Resolving]
  - Hiccups [Recovering/Resolving]
  - Pyrexia [Recovering/Resolving]
